FAERS Safety Report 4648003-6 (Version None)
Quarter: 2005Q2

REPORT INFORMATION
  Report Type: 
  Country: None (occurrence: None)
  Receive Date: 20050331
  Receipt Date: 20050118
  Transmission Date: 20051028
  Serious: No
  Sender: FDA-Public Use
  Company Number: 05P-163-0287063-00

PATIENT
  Age: 69 Year
  Sex: Female
  Weight: 80.2867 kg

DRUGS (10)
  1. HUMIRA [Suspect]
     Indication: RHEUMATOID ARTHRITIS
     Dosage: 40 MG, 1 IN 2 WK, SUBCUTANEOUS
     Route: 058
     Dates: start: 20030201
  2. CELECOXIB [Concomitant]
  3. METHOTREXATE [Concomitant]
  4. GLUCOPHAGE [Concomitant]
  5. FOLIC ACID [Concomitant]
  6. PREDNISONE [Concomitant]
  7. METOPROLOL SUCCINATE [Concomitant]
  8. CLONIDINE [Concomitant]
  9. METOPROLOL TARTRATE [Concomitant]
  10. TOCOPHEROL CONCENTRATE CAP [Concomitant]

REACTIONS (1)
  - GOUT [None]
